FAERS Safety Report 8215696-6 (Version None)
Quarter: 2012Q1

REPORT INFORMATION
  Report Type: 
  Country: None (occurrence: None)
  Receive Date: 20120316
  Receipt Date: 20120309
  Transmission Date: 20120608
  Serious: Yes (Death, Hospitalization)
  Sender: FDA-Public Use
  Company Number: BR-ROCHE-687356

PATIENT
  Sex: Female
  Weight: 37 kg

DRUGS (5)
  1. MORPHINE [Concomitant]
     Indication: CANCER PAIN
     Dates: start: 20091128, end: 20100217
  2. LACTULOSE [Concomitant]
     Indication: CONSTIPATION PROPHYLAXIS
     Dates: start: 20091214, end: 20100217
  3. ROFERON-A [Suspect]
     Indication: RENAL CELL CARCINOMA
     Dosage: DOSE: 6 UM THRICE WEEKLY
     Route: 058
     Dates: start: 20091127, end: 20100215
  4. OMEPRAZOLE [Concomitant]
     Indication: PROPHYLAXIS
     Dates: start: 20090801, end: 20100217
  5. AVASTIN [Suspect]
     Indication: RENAL CELL CARCINOMA
     Route: 042
     Dates: start: 20091127, end: 20100215

REACTIONS (2)
  - GASTRIC FISTULA [None]
  - SEPSIS [None]
